FAERS Safety Report 11538718 (Version 1)
Quarter: 2015Q3

REPORT INFORMATION
  Report Type: Spontaneous
  Country: US (occurrence: None)
  Receive Date: 20150921
  Receipt Date: 20150921
  Transmission Date: 20151125
  Serious: Yes (Other)
  Sender: FDA-Public Use
  Company Number: None

PATIENT
  Age: 2 Year
  Sex: Male
  Weight: 13.15 kg

DRUGS (13)
  1. TYLENOL [Concomitant]
     Active Substance: ACETAMINOPHEN
  2. MIRALAX [Concomitant]
     Active Substance: POLYETHYLENE GLYCOL 3350
  3. TOPIRAMATE. [Concomitant]
     Active Substance: TOPIRAMATE
  4. VITAMIN D [Concomitant]
     Active Substance: CHOLECALCIFEROL
  5. UBIQUINOL [Concomitant]
     Active Substance: UBIQUINOL
  6. PREVACID [Concomitant]
     Active Substance: LANSOPRAZOLE
  7. CBD OIL [Concomitant]
  8. IBUPROFEN. [Concomitant]
     Active Substance: IBUPROFEN
  9. GREEN VIBRANCE JUNIOR [Concomitant]
  10. COQ10 [Concomitant]
     Active Substance: UBIDECARENONE
  11. BANZEL [Suspect]
     Active Substance: RUFINAMIDE
     Indication: ATONIC SEIZURES
     Dosage: 3ML-7ML
     Route: 048
  12. CLONAZEPAM. [Concomitant]
     Active Substance: CLONAZEPAM
  13. LIPOSOMAL [Concomitant]
     Active Substance: AMPHOTERICIN B

REACTIONS (3)
  - Movement disorder [None]
  - Coordination abnormal [None]
  - Drug ineffective [None]
